FAERS Safety Report 9741150 (Version 1)
Quarter: 2013Q4

REPORT INFORMATION
  Report Type: Spontaneous
  Country: US (occurrence: US)
  Receive Date: 20131209
  Receipt Date: 20131209
  Transmission Date: 20140711
  Serious: No
  Sender: FDA-Public Use
  Company Number: US-FOUGERA-2012FO001432

PATIENT
  Age: 34 Year
  Sex: Male

DRUGS (2)
  1. SULFACETAMIDE SODIUM [Suspect]
     Indication: ROSACEA
     Route: 061
     Dates: start: 20121122
  2. ORACEA [Suspect]
     Indication: ROSACEA
     Route: 048
     Dates: start: 20121122

REACTIONS (3)
  - Dizziness [Recovered/Resolved]
  - Hearing impaired [Not Recovered/Not Resolved]
  - Off label use [Unknown]
